FAERS Safety Report 5863254-0 (Version None)
Quarter: 2008Q3

REPORT INFORMATION
  Report Type: 
  Country: None (occurrence: None)
  Receive Date: 20080828
  Receipt Date: 20080813
  Transmission Date: 20090109
  Serious: Yes (Death)
  Sender: FDA-Public Use
  Company Number: MK-ROCHE-581249

PATIENT
  Sex: Female
  Weight: 47 kg

DRUGS (5)
  1. CEFTRIAXONE [Suspect]
     Indication: DRUG USE FOR UNKNOWN INDICATION
     Dosage: DRUG NAME REPORTED: CEPHTRIAXON.
     Route: 065
     Dates: start: 20080321, end: 20080325
  2. EPOETIN BETA [Suspect]
     Dosage: STRANGTH: 2000 IU/0.3ML
     Route: 058
     Dates: start: 20060308, end: 20080701
  3. AMIKACIN [Suspect]
     Indication: DRUG USE FOR UNKNOWN INDICATION
     Route: 065
     Dates: start: 20080323, end: 20080402
  4. FUROSEMID [Suspect]
     Indication: DRUG USE FOR UNKNOWN INDICATION
     Route: 065
     Dates: start: 20070326, end: 20080403
  5. ENALAPRIL MALEATE [Suspect]
     Indication: DRUG USE FOR UNKNOWN INDICATION
     Route: 065
     Dates: start: 20060315, end: 20080303

REACTIONS (1)
  - CARDIAC FAILURE ACUTE [None]
